FAERS Safety Report 5045846-4 (Version None)
Quarter: 2006Q3

REPORT INFORMATION
  Report Type: 
  Country: None (occurrence: None)
  Receive Date: 20060710
  Receipt Date: 20060420
  Transmission Date: 20061208
  Serious: Yes (Death, Disabling)
  Sender: FDA-Public Use
  Company Number: PHHO2006JP06671

PATIENT
  Age: 23 Year
  Sex: Male
  Weight: 52 kg

DRUGS (7)
  1. SIMULECT [Suspect]
     Indication: RENAL TRANSPLANT
     Dosage: 20 MG, ONCE/SINGLE
     Route: 042
     Dates: start: 20031021, end: 20031021
  2. SIMULECT [Suspect]
     Dosage: 20 MG, ONCE/SINGLE
     Route: 042
     Dates: start: 20031025, end: 20031025
  3. PROGRAF [Suspect]
     Indication: RENAL TRANSPLANT
     Route: 048
     Dates: start: 20031019, end: 20031121
  4. CELLCEPT [Suspect]
     Indication: RENAL TRANSPLANT
     Route: 048
     Dates: start: 20031027, end: 20031117
  5. SOLU-MEDROL [Suspect]
     Indication: RENAL TRANSPLANT
  6. MEDROL [Suspect]
     Indication: RENAL TRANSPLANT
  7. PREDONINE [Suspect]
     Indication: RENAL TRANSPLANT

REACTIONS (14)
  - CANDIDA SEPSIS [None]
  - CANDIDIASIS [None]
  - EPSTEIN-BARR VIRUS INFECTION [None]
  - HISTIOCYTOSIS HAEMATOPHAGIC [None]
  - INCISIONAL DRAINAGE [None]
  - KIDNEY TRANSPLANT REJECTION [None]
  - MELAENA [None]
  - PYREXIA [None]
  - REMOVAL OF RENAL TRANSPLANT [None]
  - SEPSIS [None]
  - SMALL INTESTINAL PERFORATION [None]
  - SMALL INTESTINE ULCER [None]
  - STAPHYLOCOCCAL INFECTION [None]
  - STAPHYLOCOCCAL SEPSIS [None]
